FAERS Safety Report 10625182 (Version 1)
Quarter: 2014Q4

REPORT INFORMATION
  Report Type: Spontaneous
  Country: US (occurrence: None)
  Receive Date: 20141202
  Receipt Date: 20141202
  Transmission Date: 20150529
  Serious: Yes (Hospitalization, Other)
  Sender: FDA-Public Use
  Company Number: 2014SCAL000243

PATIENT
  Age: 54 Year
  Sex: Female

DRUGS (2)
  1. LAMOTRIGINE (LAMOTRIGINE) UNKNOWN [Suspect]
     Active Substance: LAMOTRIGINE
     Indication: PRODUCT USED FOR UNKNOWN INDICATION
  2. CLINDAMYCIN [Suspect]
     Active Substance: CLINDAMYCIN\CLINDAMYCIN PHOSPHATE
     Indication: CELLULITIS
     Dosage: OD

REACTIONS (6)
  - Drug reaction with eosinophilia and systemic symptoms [None]
  - Blood creatinine increased [None]
  - Cellulitis [None]
  - Dyspnoea [None]
  - Lung infiltration [None]
  - Abdominal pain [None]
